FAERS Safety Report 17032569 (Version 1)
Quarter: 2019Q4

REPORT INFORMATION
  Report Type: Spontaneous
  Country: US (occurrence: US)
  Receive Date: 20191014
  Receipt Date: 20191014
  Transmission Date: 20200122
  Serious: Yes (Hospitalization)
  Sender: FDA-Public Use
  Company Number: None

PATIENT
  Age: 29 Year
  Sex: Female

DRUGS (2)
  1. STELARA [Suspect]
     Active Substance: USTEKINUMAB
     Indication: CROHN^S DISEASE
     Route: 058
     Dates: start: 20190515
  2. SPIRONOLACT [Concomitant]
     Active Substance: SPIRONOLACTONE

REACTIONS (3)
  - Fistula of small intestine [None]
  - Abscess intestinal [None]
  - Ovarian cyst ruptured [None]

NARRATIVE: CASE EVENT DATE: 20190912
